FAERS Safety Report 20050263 (Version 2)
Quarter: 2022Q1

REPORT INFORMATION
  Report Type: Report from Study
  Country: JP (occurrence: JP)
  Receive Date: 20211109
  Receipt Date: 20220103
  Transmission Date: 20220423
  Serious: Yes (Other)
  Sender: FDA-Public Use
  Company Number: JP-BAUSCH-BL-2021-035438

PATIENT
  Age: 87 Year
  Sex: Female

DRUGS (11)
  1. TARGRETIN [Suspect]
     Active Substance: BEXAROTENE
     Indication: Cutaneous T-cell lymphoma
     Route: 048
     Dates: start: 20181220, end: 20181220
  2. TARGRETIN [Suspect]
     Active Substance: BEXAROTENE
     Dosage: TARGRETIN DOSE CHANGED TO 112.5 MG ONCE DAILY
     Route: 048
  3. TARGRETIN [Suspect]
     Active Substance: BEXAROTENE
     Dosage: TARGRETIN DOSE CHANGED TO 75 MG 4 TIMES A WEEK
     Route: 048
     Dates: start: 201812
  4. TARGRETIN [Suspect]
     Active Substance: BEXAROTENE
     Dosage: BEXAROTENE DOSE CHANGED TO 375 MG (UNKNOWN FREQUENCY)
     Route: 048
     Dates: start: 20181221, end: 20181227
  5. TARGRETIN [Suspect]
     Active Substance: BEXAROTENE
     Dosage: BEXAROTENE DOSE CHANGED TO 225 MG (UNKNOWN FREQUENCY)
     Route: 048
     Dates: start: 20181228, end: 20181228
  6. TARGRETIN [Suspect]
     Active Substance: BEXAROTENE
     Dosage: 11/JAN/2019 : BEXAROTENE DOSE CHANGED TO 75 MG. ON 20/JAN/2019: BEXAROTENE DISCONTINUED.
     Route: 048
     Dates: start: 20190111, end: 20190120
  7. TARGRETIN [Suspect]
     Active Substance: BEXAROTENE
     Dosage: BEXAROTENE RESTARTED 75 MG (ONE TIME OF TWO DAYS).
     Route: 048
     Dates: start: 20190201, end: 2019
  8. TARGRETIN [Suspect]
     Active Substance: BEXAROTENE
     Dosage: BEXAROTENE DOSE CHANGED TO 225 MG (ONE TIME OF TWO DAYS)
     Route: 048
     Dates: start: 2019, end: 20190708
  9. TARGRETIN [Suspect]
     Active Substance: BEXAROTENE
     Dosage: //2019 : BEXAROTENE CHANGED TO UNKNOWN DOSE AND FREQUENCY
     Route: 048
     Dates: start: 2019, end: 2019
  10. TARGRETIN [Suspect]
     Active Substance: BEXAROTENE
     Dosage: 13/APR/2021: EVENT CEREBRAL INFARCTION OCCURRED
     Route: 048
     Dates: start: 2019, end: 20210425
  11. TARGRETIN [Suspect]
     Active Substance: BEXAROTENE
     Route: 048
     Dates: start: 202102, end: 20210425

REACTIONS (5)
  - Cerebral infarction [Unknown]
  - Hypothyroidism [Unknown]
  - Infection [Unknown]
  - Anaemia [Unknown]
  - Dyslipidaemia [Recovering/Resolving]

NARRATIVE: CASE EVENT DATE: 20181228
